FAERS Safety Report 7894197-9 (Version None)
Quarter: 2011Q4

REPORT INFORMATION
  Report Type: 
  Country: None (occurrence: None)
  Receive Date: 20111104
  Receipt Date: 20111030
  Transmission Date: 20120403
  Serious: Yes (Hospitalization)
  Sender: FDA-Public Use
  Company Number: US-US-EMD SERONO, INC.-232211K08USA

PATIENT
  Sex: Female
  Weight: 54 kg

DRUGS (14)
  1. BACLOFEN [Concomitant]
     Indication: MUSCLE SPASMS
     Route: 065
  2. SIMVASTATIN [Concomitant]
     Indication: BLOOD CHOLESTEROL INCREASED
     Route: 065
  3. REBIF [Suspect]
     Route: 058
     Dates: start: 20050701, end: 20060501
  4. REBIF [Suspect]
     Route: 058
     Dates: start: 20070119
  5. AMBIEN [Concomitant]
     Indication: SLEEP DISORDER
     Route: 065
  6. REBIF [Suspect]
     Indication: MULTIPLE SCLEROSIS
     Route: 058
     Dates: start: 20030901, end: 20050501
  7. FIORICET [Concomitant]
     Indication: MIGRAINE
     Route: 065
  8. LEXAPRO [Concomitant]
     Indication: DEPRESSION
     Route: 065
     Dates: start: 20030101
  9. LIPITOR [Concomitant]
     Route: 065
  10. ATENOLOL [Concomitant]
     Route: 065
  11. LISINOPRIL [Concomitant]
     Indication: HYPERTENSION
     Route: 065
  12. ALEVE [Concomitant]
     Indication: MIGRAINE
     Route: 065
  13. LIPITOR [Concomitant]
     Indication: BLOOD CHOLESTEROL INCREASED
     Route: 065
     Dates: end: 20080601
  14. XANAX [Concomitant]
     Route: 065

REACTIONS (3)
  - DRUG ERUPTION [None]
  - MYOCARDIAL INFARCTION [None]
  - CORONARY ARTERY OCCLUSION [None]
